FAERS Safety Report 6804237-3 (Version None)
Quarter: 2010Q2

REPORT INFORMATION
  Report Type: 
  Country: None (occurrence: None)
  Receive Date: 20100628
  Receipt Date: 20070131
  Transmission Date: 20101027
  Serious: No
  Sender: FDA-Public Use
  Company Number: US-PFIZER INC-2007009958

PATIENT
  Sex: Male
  Weight: 113.4 kg

DRUGS (2)
  1. SOMAVERT [Suspect]
     Indication: PITUITARY TUMOUR
     Dates: start: 20060601
  2. ALL OTHER THERAPEUTIC PRODUCTS [Concomitant]

REACTIONS (1)
  - HEADACHE [None]
